FAERS Safety Report 9472900 (Version 1)
Quarter: 2013Q3

REPORT INFORMATION
  Report Type: Spontaneous
  Country: US (occurrence: US)
  Receive Date: 20130823
  Receipt Date: 20130823
  Transmission Date: 20140515
  Serious: No
  Sender: FDA-Public Use
  Company Number: US-BAYER-2013-098253

PATIENT
  Age: 43 Year
  Sex: Female

DRUGS (2)
  1. CIPRO [Suspect]
     Indication: INFECTION
     Dosage: 1 UNK, UNK
     Route: 048
     Dates: start: 20130810, end: 20130810
  2. CIPRO [Suspect]
     Indication: INFECTION
     Dosage: 1 UNK, UNK
     Route: 048
     Dates: start: 20130810, end: 20130810

REACTIONS (1)
  - Exposure during breast feeding [None]
